FAERS Safety Report 9975298 (Version 1)
Quarter: 2014Q1

REPORT INFORMATION
  Report Type: Report from Study
  Country: US (occurrence: US)
  Receive Date: 20140306
  Receipt Date: 20140306
  Transmission Date: 20141002
  Serious: No
  Sender: FDA-Public Use
  Company Number: US-ABBVIE-13P-163-1159521-00

PATIENT
  Age: 63 Year
  Sex: Female

DRUGS (4)
  1. HUMIRA [Suspect]
     Indication: CROHN^S DISEASE
     Dates: start: 20130918
  2. LOMOTIL [Concomitant]
     Indication: DIARRHOEA
  3. IMURAN [Concomitant]
     Indication: CROHN^S DISEASE
     Dosage: DECREASING IT STARTING NEXT WEEK TO GET OFF MED
  4. PREDNISONE [Concomitant]
     Indication: PRODUCT USED FOR UNKNOWN INDICATION
     Dosage: TAPERING OFF

REACTIONS (1)
  - Injection site bruising [Recovered/Resolved]
